FAERS Safety Report 10010582 (Version 15)
Quarter: 2015Q2

REPORT INFORMATION
  Report Type: Report from Study
  Country: DE (occurrence: DE)
  Receive Date: 20140314
  Receipt Date: 20150630
  Transmission Date: 20150821
  Serious: Yes (Life-Threatening, Hospitalization)
  Sender: FDA-Public Use
  Company Number: DE-ROCHE-1354830

PATIENT
  Age: 64 Year
  Sex: Female
  Weight: 72 kg

DRUGS (38)
  1. ACICLOVIR [Concomitant]
     Active Substance: ACYCLOVIR
     Route: 048
     Dates: start: 20140122
  2. PANTOPRAZOLE SODIUM. [Concomitant]
     Active Substance: PANTOPRAZOLE SODIUM
     Route: 048
     Dates: start: 20140203, end: 20140313
  3. ASPIRIN. [Concomitant]
     Active Substance: ASPIRIN
     Route: 048
     Dates: start: 20140203
  4. ATACAND [Concomitant]
     Active Substance: CANDESARTAN CILEXETIL
     Route: 065
     Dates: start: 20140218
  5. L-THYROXIN [Concomitant]
     Active Substance: LEVOTHYROXINE SODIUM
     Route: 048
     Dates: start: 20140108, end: 20140313
  6. RANITIDIN [Concomitant]
     Active Substance: RANITIDINE HYDROCHLORIDE
     Indication: PROPHYLAXIS
     Route: 042
     Dates: start: 20140120, end: 20140217
  7. FENISTIL (GERMANY) [Concomitant]
     Dosage: SINGLE DOSE
     Route: 042
     Dates: start: 20140217, end: 20140217
  8. NEULASTA [Concomitant]
     Active Substance: PEGFILGRASTIM
     Route: 058
     Dates: start: 20140131, end: 20140131
  9. RANITIC [Concomitant]
     Active Substance: RANITIDINE HYDROCHLORIDE
     Dosage: SINGLE DOSE
     Route: 042
     Dates: start: 20140217, end: 20140217
  10. AMLODIPIN [Concomitant]
     Active Substance: AMLODIPINE BESYLATE
     Route: 048
     Dates: start: 20140203, end: 20140227
  11. PREDNISOLONE. [Concomitant]
     Active Substance: PREDNISOLONE
     Route: 042
     Dates: start: 20140120, end: 20140217
  12. PREDNISOLONE. [Concomitant]
     Active Substance: PREDNISOLONE
     Dosage: SINGLE DOSE
     Route: 042
     Dates: start: 20140217, end: 20140217
  13. LOSFERRON [Concomitant]
     Dosage: 2 EFFERVESCENT TABLET
     Route: 048
     Dates: start: 20140108
  14. E153 [Concomitant]
     Route: 042
     Dates: start: 20140120, end: 20140217
  15. E153 [Concomitant]
     Dosage: SINGLE DOSE
     Route: 042
     Dates: start: 20140217, end: 20140217
  16. FASTURTEC [Concomitant]
     Active Substance: RASBURICASE
     Indication: PROPHYLAXIS
     Route: 042
     Dates: start: 20140120, end: 20140217
  17. SIMVASTATIN. [Concomitant]
     Active Substance: SIMVASTATIN
     Route: 048
     Dates: start: 20140203, end: 20140313
  18. BENDAMUSTINE [Suspect]
     Active Substance: BENDAMUSTINE
     Indication: CHRONIC LYMPHOCYTIC LEUKAEMIA
     Dosage: ONLY DOSE PRIOR TO SAE. ?DOSE AND FREQUENCY AS PER PROTOCOL.
     Route: 042
     Dates: start: 20140120
  19. INTRATECT [Concomitant]
     Active Substance: HUMAN IMMUNOGLOBULIN G
     Route: 042
     Dates: start: 20140108, end: 20140313
  20. ATACAND [Concomitant]
     Active Substance: CANDESARTAN CILEXETIL
     Route: 048
     Dates: start: 20140108, end: 20140313
  21. DIHYDROTACHYSTEROL [Concomitant]
     Active Substance: DIHYDROTACHYSTEROL
     Dosage: 10 PEARLS, SINGLE DOSE
     Route: 048
     Dates: start: 20140108, end: 20140313
  22. PARACETAMOL [Concomitant]
     Active Substance: ACETAMINOPHEN
     Indication: PROPHYLAXIS
     Route: 048
     Dates: start: 20140120, end: 20140217
  23. OBINUTUZUMAB [Suspect]
     Active Substance: OBINUTUZUMAB
     Indication: CHRONIC LYMPHOCYTIC LEUKAEMIA
     Dosage: C1D1?DATE OF LAST DOSE PRIOR TO SAE: 17/FEB/2014.?PERMANENTLY DISCONTINUED.
     Route: 042
     Dates: start: 20140120, end: 20140218
  24. INTRATECT [Concomitant]
     Active Substance: HUMAN IMMUNOGLOBULIN G
     Route: 042
     Dates: start: 20110926
  25. DIHYDROTACHYSTEROL [Concomitant]
     Active Substance: DIHYDROTACHYSTEROL
     Route: 065
     Dates: start: 20140218
  26. ONDANSETRON [Concomitant]
     Active Substance: ONDANSETRON
     Route: 042
     Dates: start: 20140121, end: 20140217
  27. ACICLOVIR [Concomitant]
     Active Substance: ACYCLOVIR
     Route: 065
     Dates: start: 20140222
  28. L-THYROXIN [Concomitant]
     Active Substance: LEVOTHYROXINE SODIUM
     Route: 065
     Dates: start: 20140218
  29. LOSFERRON [Concomitant]
     Dosage: 2 EFFERVESCENT TABLET
     Route: 065
     Dates: start: 20140218
  30. SULFAMETHOXAZOLE/TRIMETHOPRIM [Concomitant]
     Active Substance: SULFAMETHOXAZOLE\TRIMETHOPRIM
     Route: 048
     Dates: start: 20140120
  31. NEULASTA [Concomitant]
     Active Substance: PEGFILGRASTIM
     Route: 058
     Dates: start: 20140123, end: 20140123
  32. ACICLOVIR [Concomitant]
     Active Substance: ACYCLOVIR
     Route: 065
     Dates: start: 20140122, end: 20140213
  33. VALSARTAN. [Concomitant]
     Active Substance: VALSARTAN
     Route: 048
     Dates: start: 20140108, end: 20140227
  34. FENISTIL (GERMANY) [Concomitant]
     Indication: PROPHYLAXIS
     Route: 042
     Dates: start: 20140120, end: 20140217
  35. COTRIM D.S. [Concomitant]
     Active Substance: SULFAMETHOXAZOLE\TRIMETHOPRIM
     Route: 048
     Dates: start: 20140120, end: 20140217
  36. FERRITIN [Concomitant]
     Active Substance: FERRITIN
     Dosage: 2 EFFERVESCENT TABLET
     Route: 048
     Dates: start: 20140108, end: 20140313
  37. FLUCONAZOLE. [Concomitant]
     Active Substance: FLUCONAZOLE
     Route: 065
     Dates: start: 20140122, end: 20140203
  38. PENTACARINAT [Concomitant]
     Active Substance: PENTAMIDINE ISETHIONATE
     Dosage: SINGLE DOSE
     Route: 045
     Dates: start: 20140213, end: 20140213

REACTIONS (3)
  - Leukopenia [Recovered/Resolved]
  - Sepsis [Recovered/Resolved]
  - Pancytopenia [Recovered/Resolved]

NARRATIVE: CASE EVENT DATE: 20140218
